FAERS Safety Report 23442637 (Version 2)
Quarter: 2024Q1

REPORT INFORMATION
  Report Type: Spontaneous
  Country: CH (occurrence: CH)
  Receive Date: 20240125
  Receipt Date: 20240311
  Transmission Date: 20240410
  Serious: Yes (Other)
  Sender: FDA-Public Use
  Company Number: CH-TEVA-VS-3137759

PATIENT
  Age: 39 Year
  Sex: Female

DRUGS (4)
  1. AZITHROMYCIN [Suspect]
     Active Substance: AZITHROMYCIN
     Indication: COVID-19
     Route: 065
  2. VITAMIN D NOS [Suspect]
     Active Substance: VITAMIN D NOS
     Indication: COVID-19
     Route: 065
  3. ZINC [Suspect]
     Active Substance: PYRITHIONE ZINC\ZINC\ZINC CHLORIDE
     Indication: COVID-19
     Route: 065
  4. TEA TREE OIL [Suspect]
     Active Substance: TEA TREE OIL
     Indication: COVID-19
     Route: 065

REACTIONS (3)
  - Chest discomfort [Recovering/Resolving]
  - Off label use [Unknown]
  - Chest pain [Recovering/Resolving]
